FAERS Safety Report 7113674-1 (Version None)
Quarter: 2010Q4

REPORT INFORMATION
  Report Type: 
  Country: None (occurrence: None)
  Receive Date: 20101119
  Receipt Date: 20101109
  Transmission Date: 20110411
  Serious: Yes (Other)
  Sender: FDA-Public Use
  Company Number: US-GENZYME-POMP-1001196

PATIENT
  Sex: Male
  Weight: 80 kg

DRUGS (1)
  1. LUMIZYME [Suspect]
     Indication: GLYCOGEN STORAGE DISEASE TYPE II
     Dosage: 17.5 MG/KG, Q2W
     Route: 042
     Dates: start: 20060811

REACTIONS (1)
  - SCOLIOSIS [None]
